FAERS Safety Report 7906221-5 (Version None)
Quarter: 2011Q4

REPORT INFORMATION
  Report Type: 
  Country: None (occurrence: None)
  Receive Date: 20111110
  Receipt Date: 20111102
  Transmission Date: 20120403
  Serious: Yes (Hospitalization)
  Sender: FDA-Public Use
  Company Number: JP-ASTELLAS-2011JP007790

PATIENT
  Age: 78 Year
  Sex: Male

DRUGS (6)
  1. VESICARE [Suspect]
     Indication: HYPERTONIC BLADDER
     Dosage: 5 MG, UNKNOWN/D
     Route: 048
     Dates: start: 20110829, end: 20110929
  2. METOPROLOL TARTRATE [Concomitant]
     Dosage: UNK
     Route: 048
     Dates: start: 20111003
  3. ALLOPURINOL [Concomitant]
     Dosage: 100 MG, UNKNOWN/D
     Route: 048
     Dates: start: 20100104
  4. CANDESARTAN CILEXETIL [Concomitant]
     Dosage: 8 MG, UNKNOWN/D
     Route: 048
     Dates: start: 20070801
  5. CIBENOL [Suspect]
     Dosage: 200 MG, UNKNOWN/D
     Route: 048
     Dates: start: 20070810
  6. METOPROLOL TARTRATE [Concomitant]
     Dosage: 10 MG, UNKNOWN/D
     Route: 048
     Dates: start: 20071101

REACTIONS (1)
  - BRADYCARDIA [None]
